FAERS Safety Report 18937281 (Version 1)
Quarter: 2021Q1

REPORT INFORMATION
  Report Type: Spontaneous
  Country: CH (occurrence: CH)
  Receive Date: 20210225
  Receipt Date: 20210225
  Transmission Date: 20210420
  Serious: Yes (Hospitalization)
  Sender: FDA-Public Use
  Company Number: CH-ROCHE-2774659

PATIENT
  Age: 59 Year
  Sex: Male

DRUGS (13)
  1. PREDNISON GALEPHARM [Concomitant]
     Active Substance: PREDNISONE
     Route: 048
  2. DIPIPERON [Concomitant]
     Active Substance: PIPAMPERONE
     Route: 048
  3. CONCOR [Concomitant]
     Active Substance: BISOPROLOL FUMARATE
     Route: 048
  4. BRINTELLIX [Concomitant]
     Active Substance: VORTIOXETINE HYDROBROMIDE
     Route: 048
  5. VALTREX [Concomitant]
     Active Substance: VALACYCLOVIR HYDROCHLORIDE
     Route: 048
  6. PRADIF T [Concomitant]
     Active Substance: TAMSULOSIN HYDROCHLORIDE
     Route: 048
  7. NOPIL [Concomitant]
     Active Substance: SULFAMETHOXAZOLE\TRIMETHOPRIM
     Dosage: (SULFAMETHOXAZOLE): 800MG; (TRIMETHOPRIM): 160MG
     Route: 048
  8. TEMESTA EXPIDET [Concomitant]
     Active Substance: LORAZEPAM
     Route: 048
  9. PANTOZOL [Concomitant]
     Active Substance: PANTOPRAZOLE SODIUM
     Route: 048
  10. LIXIANA [Concomitant]
     Active Substance: EDOXABAN TOSYLATE
     Route: 048
  11. URSOFALK [Concomitant]
     Active Substance: URSODIOL
     Route: 048
  12. CELLCEPT [Suspect]
     Active Substance: MYCOPHENOLATE MOFETIL\MYCOPHENOLATE MOFETIL HYDROCHLORIDE
     Indication: PRODUCT USED FOR UNKNOWN INDICATION
     Route: 048
     Dates: start: 20201120, end: 20210105
  13. NOXAFIL [Concomitant]
     Active Substance: POSACONAZOLE
     Route: 048

REACTIONS (3)
  - Personality change [Recovered/Resolved]
  - Logorrhoea [Recovered/Resolved]
  - Insomnia [Recovered/Resolved]

NARRATIVE: CASE EVENT DATE: 20201127
